FAERS Safety Report 10700756 (Version 2)
Quarter: 2015Q1

REPORT INFORMATION
  Report Type: Spontaneous
  Country: HK (occurrence: HK)
  Receive Date: 20150109
  Receipt Date: 20150109
  Transmission Date: 20150721
  Serious: Yes (Hospitalization)
  Sender: FDA-Public Use
  Company Number: HK-AMGEN-HKGSP2014099119

PATIENT
  Age: 37 Year
  Sex: Female

DRUGS (2)
  1. FOLFOX [Concomitant]
     Active Substance: FLUOROURACIL\LEUCOVORIN CALCIUM\OXALIPLATIN
     Dosage: UNK
     Dates: start: 20140818
  2. VECTIBIX [Suspect]
     Active Substance: PANITUMUMAB
     Indication: COLORECTAL CANCER
     Dosage: 430 MG, UNK
     Route: 042
     Dates: start: 20140902, end: 20141125

REACTIONS (4)
  - Skin reaction [Recovering/Resolving]
  - Superinfection [Unknown]
  - Pyrexia [Unknown]
  - Rash [Recovering/Resolving]

NARRATIVE: CASE EVENT DATE: 2014
